FAERS Safety Report 5566560-2 (Version None)
Quarter: 2007Q4

REPORT INFORMATION
  Report Type: 
  Country: None (occurrence: None)
  Receive Date: 20071219
  Receipt Date: 20071214
  Transmission Date: 20080405
  Serious: Yes (Other)
  Sender: FDA-Public Use
  Company Number: US-JNJFOC-20071204459

PATIENT
  Age: 19 Year
  Sex: Male
  Weight: 88.45 kg

DRUGS (2)
  1. CONCERTA [Suspect]
     Indication: ATTENTION DEFICIT/HYPERACTIVITY DISORDER
     Route: 048
  2. SUDAFED 12 HOUR [Concomitant]

REACTIONS (2)
  - DRUG ABUSE [None]
  - URINE AMPHETAMINE POSITIVE [None]
